FAERS Safety Report 10286401 (Version 3)
Quarter: 2014Q4

REPORT INFORMATION
  Report Type: Spontaneous
  Country: US (occurrence: US)
  Receive Date: 20140709
  Receipt Date: 20141024
  Transmission Date: 20150528
  Serious: Yes (Other)
  Sender: FDA-Public Use
  Company Number: US-PFIZER INC-2014187921

PATIENT
  Age: 65 Year
  Sex: Female
  Weight: 59 kg

DRUGS (11)
  1. COREG [Concomitant]
     Active Substance: CARVEDILOL
     Indication: HYPERTENSION
     Dosage: 12.5 MG, DAILY
  2. SUTENT [Suspect]
     Active Substance: SUNITINIB MALATE
     Indication: RENAL CELL CARCINOMA
     Dosage: 50 MG, CYCLIC (4 WEEKS, OFF FOR 2 WEEKS REPEAT EVERY 6 WEEKS)
     Route: 048
     Dates: start: 20140606, end: 20140621
  3. NORVASC [Concomitant]
     Active Substance: AMLODIPINE BESYLATE
     Indication: HYPERTENSION
     Dosage: UNK
  4. ATIVAN [Concomitant]
     Active Substance: LORAZEPAM
     Dosage: UNK
  5. OMEPRAZOLE. [Concomitant]
     Active Substance: OMEPRAZOLE
     Indication: GASTROOESOPHAGEAL REFLUX DISEASE
     Dosage: 20 MG, DAILY
     Route: 048
     Dates: start: 20140619
  6. SUTENT [Suspect]
     Active Substance: SUNITINIB MALATE
     Dosage: UNK
     Route: 048
     Dates: start: 201406, end: 20140627
  7. LEVOTHYROXINE [Concomitant]
     Active Substance: LEVOTHYROXINE
     Dosage: 25 UG, DAILY
     Route: 048
  8. DURAGESIC [Concomitant]
     Active Substance: FENTANYL
     Indication: PAIN
     Dosage: UNK (25MCG/HR TRANSDERMAL PATCH; CHANGE Q72 HOURS)
     Route: 062
     Dates: start: 20140619
  9. SUTENT [Suspect]
     Active Substance: SUNITINIB MALATE
     Dosage: 12.5 MG, UNK
     Route: 048
     Dates: end: 20140829
  10. ZOFRAN [Concomitant]
     Active Substance: ONDANSETRON HYDROCHLORIDE
     Dosage: UNK
  11. LEXAPRO [Concomitant]
     Active Substance: ESCITALOPRAM OXALATE
     Dosage: UNK

REACTIONS (18)
  - Periorbital oedema [Unknown]
  - Decreased appetite [Unknown]
  - Renal failure [Unknown]
  - Nausea [Unknown]
  - Weight increased [Unknown]
  - Abdominal pain upper [Unknown]
  - Swelling [Recovered/Resolved]
  - Fatigue [Unknown]
  - Hypothyroidism [Unknown]
  - Abdominal discomfort [Unknown]
  - Fatigue [Recovered/Resolved]
  - Pain [Unknown]
  - Diarrhoea [Unknown]
  - Yellow skin [Unknown]
  - Vomiting [Unknown]
  - Depression [Recovered/Resolved]
  - Rectal haemorrhage [Unknown]
  - Swelling face [Unknown]

NARRATIVE: CASE EVENT DATE: 201406
